FAERS Safety Report 10041591 (Version 1)
Quarter: 2014Q1

REPORT INFORMATION
  Report Type: Spontaneous
  Country: US (occurrence: US)
  Receive Date: 20140327
  Receipt Date: 20140327
  Transmission Date: 20141002
  Serious: No
  Sender: FDA-Public Use
  Company Number: US-PFIZER INC-2014087202

PATIENT
  Sex: Female

DRUGS (1)
  1. CELEBREX [Suspect]
     Indication: ARTHRITIS
     Dosage: 200 MG, DAILY

REACTIONS (4)
  - Dizziness [Unknown]
  - Memory impairment [Unknown]
  - Constipation [Unknown]
  - Drug effect incomplete [Unknown]
